FAERS Safety Report 14204880 (Version 1)
Quarter: 2017Q4

REPORT INFORMATION
  Report Type: Spontaneous
  Country: IT (occurrence: IT)
  Receive Date: 20171120
  Receipt Date: 20171120
  Transmission Date: 20180321
  Serious: Yes (Other)
  Sender: FDA-Public Use
  Company Number: IT-MYLANLABS-2017M1072395

PATIENT
  Age: 10 Year
  Sex: Male
  Weight: 36 kg

DRUGS (3)
  1. FLUVOXAMINE [Suspect]
     Active Substance: FLUVOXAMINE
     Indication: OBSESSIVE-COMPULSIVE DISORDER
     Dosage: 50 MG DAILY
     Route: 048
     Dates: start: 20170913
  2. RISPERDAL [Concomitant]
     Active Substance: RISPERIDONE
     Indication: PRODUCT USED FOR UNKNOWN INDICATION
     Dosage: 0.5 MG, UNK
  3. FLUVOXAMINE [Suspect]
     Active Substance: FLUVOXAMINE
     Dosage: UNK
     Dates: end: 20171027

REACTIONS (4)
  - Agitation [Unknown]
  - Psychomotor hyperactivity [Unknown]
  - Dyskinesia [Unknown]
  - Vomiting [Unknown]

NARRATIVE: CASE EVENT DATE: 20171020
